FAERS Safety Report 8626604 (Version 2)
Quarter: 2012Q4

REPORT INFORMATION
  Report Type: 
  Country: US (occurrence: US)
  Receive Date: 20120620
  Receipt Date: 20120829
  Transmission Date: 20130627
  Serious: Yes (Other)
  Sender: FDA-Public Use
  Company Number: US-ASTRAZENECA-2012SE39254

PATIENT
  Age: 50 Year
  Sex: Male

DRUGS (1)
  1. NEXIUM [Suspect]
     Route: 048

REACTIONS (9)
  - Ulcer haemorrhage [Unknown]
  - Convulsion [Unknown]
  - Gastrointestinal haemorrhage [Unknown]
  - Gastrooesophageal reflux disease [Unknown]
  - Back disorder [Unknown]
  - Ulcer [Unknown]
  - Pharyngeal disorder [Unknown]
  - Fluid retention [Unknown]
  - Flatulence [Unknown]
